FAERS Safety Report 15223252 (Version 1)
Quarter: 2018Q3

REPORT INFORMATION
  Report Type: Spontaneous
  Country: US (occurrence: US)
  Receive Date: 20180705
  Receipt Date: 20180705
  Transmission Date: 20181010
  Serious: No
  Sender: FDA-Public Use
  Company Number: None

PATIENT
  Age: 81 Year
  Sex: Female
  Weight: 70.31 kg

DRUGS (1)
  1. LUCENTIS [Suspect]
     Active Substance: RANIBIZUMAB
     Indication: RETINAL VEIN OCCLUSION
     Dosage: ?          QUANTITY:0.5 DF DOSAGE FORM;OTHER FREQUENCY:EVERY 7?8 WKS;?
     Dates: start: 20120417, end: 20180626

REACTIONS (1)
  - Vision blurred [None]

NARRATIVE: CASE EVENT DATE: 20120417
